FAERS Safety Report 16238223 (Version 1)
Quarter: 2019Q2

REPORT INFORMATION
  Report Type: Spontaneous
  Country: ES (occurrence: ES)
  Receive Date: 20190425
  Receipt Date: 20190425
  Transmission Date: 20190711
  Serious: Yes (Death, Other)
  Sender: FDA-Public Use
  Company Number: ES-MYLANLABS-2019M1038085

PATIENT
  Age: 48 Year
  Sex: Female

DRUGS (8)
  1. FLUOROURACIL. [Suspect]
     Active Substance: FLUOROURACIL
     Indication: ADENOCARCINOMA OF COLON
     Dosage: PART OF MFOLFOX6-BEVACIZUMAB AND 5FU-AVASTIN REGIMEN
     Route: 065
     Dates: start: 201309
  2. AVASTIN [Suspect]
     Active Substance: BEVACIZUMAB
     Indication: ADENOCARCINOMA OF COLON
     Dosage: PART OF MFOLFOX6-BEVACIZUMAB REGIMEN AND 5FU-AVASTIN REGIMEN
     Route: 065
     Dates: start: 201309
  3. SIR SPHERES Y-90 [Suspect]
     Active Substance: DEVICE\YTTRIUM Y-90
     Indication: ADENOCARCINOMA OF COLON
     Route: 065
     Dates: start: 201402
  4. OXALIPLATIN. [Suspect]
     Active Substance: OXALIPLATIN
     Indication: ADENOCARCINOMA OF COLON
     Dosage: PART OF MFOLFOX6-BEVACIZUMAB
     Route: 065
  5. FOLINIC ACID [Suspect]
     Active Substance: LEUCOVORIN
     Indication: ADENOCARCINOMA OF COLON
     Dosage: PART OF MFOLFOX6-BEVACIZUMAB REGIMEN
     Route: 065
     Dates: start: 201309
  6. AFLIBERCEPT [Suspect]
     Active Substance: AFLIBERCEPT
     Indication: ADENOCARCINOMA OF COLON
     Dosage: PART OF FOLFIRI-AFLIBERCEPT REGIMEN
     Route: 065
  7. IRINOTECAN [Suspect]
     Active Substance: IRINOTECAN
     Indication: ADENOCARCINOMA OF COLON
     Dosage: PART OF FOLFIRI-AFLIBERCEPT REGIMEN
     Route: 065
  8. TAS 102 [Suspect]
     Active Substance: TIPIRACIL HYDROCHLORIDE\TRIFLURIDINE
     Indication: ADENOCARCINOMA OF COLON
     Route: 065

REACTIONS (10)
  - Duodenal ulcer haemorrhage [Unknown]
  - Non-cirrhotic portal hypertension [Unknown]
  - Hyperalbuminaemia [Unknown]
  - Abdominal pain [Unknown]
  - Hepatic failure [Fatal]
  - Splenomegaly [Unknown]
  - Anaemia [Unknown]
  - Hypoalbuminaemia [Unknown]
  - Varices oesophageal [Unknown]
  - Vomiting [Unknown]
